FAERS Safety Report 9731260 (Version 2)
Quarter: 2014Q1

REPORT INFORMATION
  Report Type: Spontaneous
  Country: RU (occurrence: RU)
  Receive Date: 20131203
  Receipt Date: 20140204
  Transmission Date: 20141002
  Serious: Yes (Hospitalization)
  Sender: FDA-Public Use
  Company Number: RU-ABBVIE-13P-251-1174256-00

PATIENT
  Age: 14 Year
  Sex: Female
  Weight: 34 kg

DRUGS (1)
  1. HUMIRA [Suspect]
     Indication: JUVENILE IDIOPATHIC ARTHRITIS
     Route: 058
     Dates: start: 20130422, end: 20130928

REACTIONS (7)
  - Neuroendocrine carcinoma [Unknown]
  - Craniopharyngioma [Unknown]
  - Appendicitis [Unknown]
  - Weight decreased [Unknown]
  - Fatigue [Unknown]
  - Ascites [Unknown]
  - Anal inflammation [Unknown]
